FAERS Safety Report 5119421-7 (Version None)
Quarter: 2006Q3

REPORT INFORMATION
  Report Type: 
  Country: None (occurrence: None)
  Receive Date: 20060929
  Receipt Date: 20060920
  Transmission Date: 20061208
  Serious: Yes (Hospitalization)
  Sender: FDA-Public Use
  Company Number: SP00979

PATIENT
  Age: 36 Year
  Sex: Female
  Weight: 42.6381 kg

DRUGS (1)
  1. COLAZAL [Suspect]
     Indication: CROHN'S DISEASE
     Dosage: 2.25G/TID, ORAL
     Route: 048
     Dates: start: 20060826, end: 20060801

REACTIONS (5)
  - ABDOMINAL PAIN [None]
  - CLOSTRIDIAL INFECTION [None]
  - COLITIS ULCERATIVE [None]
  - NAUSEA [None]
  - WHITE BLOOD CELL COUNT INCREASED [None]
